FAERS Safety Report 14034590 (Version 1)
Quarter: 2017Q4

REPORT INFORMATION
  Report Type: Spontaneous
  Country: US (occurrence: US)
  Receive Date: 20171003
  Receipt Date: 20171003
  Transmission Date: 20180321
  Serious: No
  Sender: FDA-Public Use
  Company Number: US-PERRIGO-17US024776

PATIENT
  Sex: Female

DRUGS (2)
  1. CLOTRIMAZOLE. [Suspect]
     Active Substance: CLOTRIMAZOLE
     Indication: TINEA CRURIS
     Dosage: 1 APPLICATION, BID
     Route: 061
     Dates: start: 20170610
  2. NYSTOP [Suspect]
     Active Substance: NYSTATIN
     Indication: TINEA CRURIS
     Dosage: 1 APPLICATION, BID
     Route: 061
     Dates: start: 20170610

REACTIONS (3)
  - Application site pruritus [Not Recovered/Not Resolved]
  - Off label use [Unknown]
  - Application site exfoliation [Not Recovered/Not Resolved]

NARRATIVE: CASE EVENT DATE: 201706
